FAERS Safety Report 6826374-X (Version None)
Quarter: 2010Q3

REPORT INFORMATION
  Report Type: 
  Country: None (occurrence: None)
  Receive Date: 20100709
  Receipt Date: 20100705
  Transmission Date: 20110219
  Serious: Yes (Hospitalization)
  Sender: FDA-Public Use
  Company Number: JP-BRACCO-003566

PATIENT
  Sex: Female

DRUGS (4)
  1. CARBOPLATIN [Concomitant]
     Indication: OVARIAN CANCER
     Route: 042
     Dates: start: 20091124, end: 20100412
  2. PACLITAXEL [Concomitant]
     Indication: OVARIAN CANCER
     Route: 042
     Dates: start: 20091124, end: 20100412
  3. IOPAMIDOL [Suspect]
     Indication: OVARIAN CANCER
     Route: 042
     Dates: start: 20100513, end: 20100513
  4. IOPAMIDOL [Suspect]
     Indication: COMPUTERISED TOMOGRAM
     Route: 042
     Dates: start: 20100513, end: 20100513

REACTIONS (1)
  - TOXIC SKIN ERUPTION [None]
